FAERS Safety Report 8070881-1 (Version None)
Quarter: 2012Q1

REPORT INFORMATION
  Report Type: 
  Country: None (occurrence: None)
  Receive Date: 20120125
  Receipt Date: 20120120
  Transmission Date: 20120608
  Serious: Yes (Other)
  Sender: FDA-Public Use
  Company Number: US-PFIZER INC-2012017248

PATIENT
  Sex: Male
  Weight: 95.238 kg

DRUGS (4)
  1. ZOLOFT [Concomitant]
     Dosage: UNK
  2. LIPITOR [Suspect]
     Indication: MYOCARDIAL INFARCTION
  3. AMBIEN [Concomitant]
     Indication: SLEEP DISORDER
     Dosage: UNK
  4. LIPITOR [Suspect]
     Indication: OFF LABEL USE
     Dosage: UNK
     Route: 048
     Dates: start: 19990101, end: 20111201

REACTIONS (1)
  - MYOCARDIAL INFARCTION [None]
